FAERS Safety Report 5335813-5 (Version None)
Quarter: 2007Q2

REPORT INFORMATION
  Report Type: 
  Country: None (occurrence: None)
  Receive Date: 20070322
  Receipt Date: 20070122
  Transmission Date: 20071010
  Serious: No
  Sender: FDA-Public Use
  Company Number: US-CVT-070033

PATIENT
  Age: 71 Year
  Sex: Male
  Weight: 91.6 kg

DRUGS (9)
  1. RANEXA [Suspect]
     Indication: ANGINA PECTORIS
     Dosage: 500 MG, BID, OTHER
     Route: 050
     Dates: start: 20061223
  2. PLAVIX [Concomitant]
  3. ASPIRIN [Concomitant]
  4. SIMVASTATIN [Concomitant]
  5. TERAZOSIN HCL [Concomitant]
  6. FELODIPINE [Concomitant]
  7. ISOSORBIDE (ISOSORBIDE) [Concomitant]
  8. LOSARTAN POTASSIUM [Concomitant]
  9. NITROGLYCERIN [Concomitant]

REACTIONS (3)
  - ABDOMINAL TENDERNESS [None]
  - CONSTIPATION [None]
  - DRUG INEFFECTIVE [None]
